FAERS Safety Report 12719098 (Version 3)
Quarter: 2016Q4

REPORT INFORMATION
  Report Type: Spontaneous
  Country: GT (occurrence: GT)
  Receive Date: 20160907
  Receipt Date: 20161011
  Transmission Date: 20170207
  Serious: Yes (Other)
  Sender: FDA-Public Use
  Company Number: GT-BAXTER-2016BAX045050

PATIENT
  Sex: Male

DRUGS (1)
  1. DEXTROSA AL 5% + CLORURO DE SODIO AL 0.9% BAXTER SOLUCI?N INYECTABLE [Suspect]
     Active Substance: DEXTROSE\SODIUM CHLORIDE
     Indication: PRODUCT USED FOR UNKNOWN INDICATION
     Route: 065

REACTIONS (1)
  - Serratia bacteraemia [Unknown]

NARRATIVE: CASE EVENT DATE: 20160810
